FAERS Safety Report 7375310-9 (Version None)
Quarter: 2011Q1

REPORT INFORMATION
  Report Type: 
  Country: None (occurrence: None)
  Receive Date: 20110325
  Receipt Date: 20110321
  Transmission Date: 20110831
  Serious: Yes (Other)
  Sender: FDA-Public Use
  Company Number: US-GENZYME-FABR-1001850

PATIENT
  Sex: Female
  Weight: 105 kg

DRUGS (3)
  1. FABRAZYME [Suspect]
     Dosage: 0.5 MG/KG, Q3W
     Route: 042
     Dates: start: 20090901
  2. FABRAZYME [Suspect]
     Indication: FABRY'S DISEASE
     Dosage: 0.5 MG/KG, Q2W
     Route: 042
  3. FABRAZYME [Suspect]
     Dosage: 105 MG, Q2W
     Route: 042
     Dates: start: 20060220, end: 20090901

REACTIONS (1)
  - CARDIOMYOPATHY [None]
